FAERS Safety Report 7710670-8 (Version None)
Quarter: 2011Q3

REPORT INFORMATION
  Report Type: 
  Country: None (occurrence: None)
  Receive Date: 20110825
  Receipt Date: 20110819
  Transmission Date: 20111222
  Serious: Yes (Hospitalization)
  Sender: FDA-Public Use
  Company Number: FR-PFIZER INC-2011191553

PATIENT
  Age: 75 Year
  Sex: Male

DRUGS (8)
  1. TIENAM [Suspect]
     Dosage: 500 MG, 3X/DAY
     Dates: start: 20110513, end: 20110516
  2. TRAMADOL HCL [Concomitant]
     Route: 042
  3. FLUCONAZOLE [Suspect]
     Dosage: 1 DF, 1X/DAY
     Route: 048
     Dates: start: 20110513, end: 20110518
  4. ASPIRIN [Concomitant]
     Dosage: 75 MG
  5. TAMSULOSIN HCL [Concomitant]
  6. NOCTAMID [Concomitant]
     Dosage: 2 MG
  7. NEXIUM [Concomitant]
     Dosage: 20 MG
  8. ESCITALOPRAM [Concomitant]
     Dosage: 10 MG

REACTIONS (1)
  - ENCEPHALOPATHY [None]
